FAERS Safety Report 8847535 (Version 1)
Quarter: 2012Q4

REPORT INFORMATION
  Report Type: 
  Country: US (occurrence: US)
  Receive Date: 20121018
  Receipt Date: 20121018
  Transmission Date: 20130627
  Serious: No
  Sender: FDA-Public Use
  Company Number: US-MYLANLABS-2012S1002025

PATIENT
  Age: 52 Year
  Sex: Female

DRUGS (3)
  1. TRAMADOL HYDROCHLORIDE AND ACETAMINOPHEN [Suspect]
     Indication: FIBROMYALGIA
     Route: 048
     Dates: start: 2009, end: 201110
  2. TRAMADOL HYDROCHLORIDE AND ACETAMINOPHEN [Suspect]
     Indication: FIBROMYALGIA
     Route: 048
     Dates: start: 201110, end: 201110
  3. TRAMADOL HYDROCHLORIDE AND ACETAMINOPHEN [Suspect]
     Indication: FIBROMYALGIA
     Route: 048

REACTIONS (5)
  - Heart rate increased [Recovered/Resolved]
  - Flushing [Recovered/Resolved]
  - Feeling jittery [Recovered/Resolved]
  - Feeling abnormal [Recovered/Resolved]
  - Product substitution issue [None]
